FAERS Safety Report 6909550-7 (Version None)
Quarter: 2010Q3

REPORT INFORMATION
  Report Type: 
  Country: None (occurrence: None)
  Receive Date: 20100805
  Receipt Date: 20100728
  Transmission Date: 20110219
  Serious: Yes (Hospitalization, Other)
  Sender: FDA-Public Use
  Company Number: GB-ABBOTT-10P-167-0660643-00

PATIENT
  Sex: Female

DRUGS (6)
  1. HUMIRA [Suspect]
     Indication: RHEUMATOID ARTHRITIS
     Dates: start: 20080101, end: 20100601
  2. HUMIRA [Suspect]
  3. WARFARIN [Interacting]
  4. FUCIDEN [Concomitant]
     Indication: PRODUCT USED FOR UNKNOWN INDICATION
  5. FLUCLOXACILLIN [Concomitant]
     Indication: PRODUCT USED FOR UNKNOWN INDICATION
  6. METHOTREXATE [Concomitant]
     Indication: PRODUCT USED FOR UNKNOWN INDICATION
     Dosage: 8 TABLETS A WEEK

REACTIONS (5)
  - DEEP VEIN THROMBOSIS [None]
  - DRUG INTERACTION [None]
  - JOINT SURGERY [None]
  - NAUSEA [None]
  - POST PROCEDURAL INFECTION [None]
